FAERS Safety Report 23113168 (Version 1)
Quarter: 2023Q4

REPORT INFORMATION
  Report Type: Report from Study
  Country: AT (occurrence: AT)
  Receive Date: 20231027
  Receipt Date: 20231027
  Transmission Date: 20240110
  Serious: Yes (Death, Other)
  Sender: FDA-Public Use
  Company Number: AT-CELLTRION INC.-2023AT020636

PATIENT

DRUGS (5)
  1. RITUXIMAB [Suspect]
     Active Substance: RITUXIMAB
     Indication: Neurodegenerative disorder
     Dosage: ONE CYCLE, 1 G EACH
  2. METHYLPREDNISOLONE [Suspect]
     Active Substance: METHYLPREDNISOLONE
     Indication: Neurodegenerative disorder
     Dosage: TWO CYCLES OF HIGH-DOSE METHYLPREDNISOLONE
  3. METHYLPREDNISOLONE [Suspect]
     Active Substance: METHYLPREDNISOLONE
     Dosage: TWO CYCLES OF HIGH-DOSE METHYLPREDNISOLONE
  4. IVIGLOB EX [Suspect]
     Active Substance: HUMAN IMMUNOGLOBULIN G
     Indication: Neurodegenerative disorder
     Dosage: TWO CYCLES, 30 G ONCE DAILY FOR 5 DAYS
  5. IVIGLOB EX [Suspect]
     Active Substance: HUMAN IMMUNOGLOBULIN G
     Dosage: TWO CYCLES, 30 G ONCE DAILY FOR 5 DAYS

REACTIONS (5)
  - Respiratory failure [Fatal]
  - Autonomic failure syndrome [Unknown]
  - Weight decreased [Unknown]
  - Condition aggravated [Unknown]
  - Drug ineffective for unapproved indication [Unknown]
